FAERS Safety Report 14709953 (Version 2)
Quarter: 2018Q3

REPORT INFORMATION
  Report Type: Spontaneous
  Country: US (occurrence: US)
  Receive Date: 20180403
  Receipt Date: 20180709
  Transmission Date: 20181010
  Serious: Yes (Other)
  Sender: FDA-Public Use
  Company Number: PHEH2018US012493

PATIENT
  Sex: Male

DRUGS (4)
  1. AMIODARONE HYDROCHLORIDE. [Suspect]
     Active Substance: AMIODARONE HYDROCHLORIDE
     Indication: ATRIAL FIBRILLATION
     Dosage: UNK,
     Route: 048
     Dates: start: 201601
  2. AMIODARONE HYDROCHLORIDE. [Suspect]
     Active Substance: AMIODARONE HYDROCHLORIDE
     Indication: ATRIAL FIBRILLATION
     Dosage: UNK,
     Route: 065
  3. AMIODARONE ZYDUS [Suspect]
     Active Substance: AMIODARONE
     Indication: ATRIAL FIBRILLATION
     Dosage: UNK,
     Route: 065
  4. AMIODARONE TEVA [Suspect]
     Active Substance: AMIODARONE
     Indication: ATRIAL FIBRILLATION
     Dosage: UNK,
     Route: 065

REACTIONS (18)
  - Wheezing [Unknown]
  - Dyspnoea [Unknown]
  - Insomnia [Unknown]
  - Amnesia [Unknown]
  - Migraine [Unknown]
  - Hyperthyroidism [Unknown]
  - Heart rate irregular [Unknown]
  - Deposit eye [Unknown]
  - Vision blurred [Unknown]
  - Tremor [Unknown]
  - Product use in unapproved indication [Unknown]
  - Pulmonary toxicity [Unknown]
  - Chest pain [Unknown]
  - Blindness [Unknown]
  - Headache [Unknown]
  - Asthenia [Unknown]
  - Fatigue [Unknown]
  - Oedema [Unknown]

NARRATIVE: CASE EVENT DATE: 201705
